FAERS Safety Report 14847031 (Version 1)
Quarter: 2018Q2

REPORT INFORMATION
  Report Type: Report from Study
  Country: US (occurrence: US)
  Receive Date: 20180504
  Receipt Date: 20180504
  Transmission Date: 20180711
  Serious: Yes (Other)
  Sender: FDA-Public Use
  Company Number: US-PFIZER INC-2018173496

PATIENT
  Age: 668 Month
  Sex: Male

DRUGS (2)
  1. DOCETAXEL. [Suspect]
     Active Substance: DOCETAXEL
     Indication: ANAPLASTIC THYROID CANCER
     Dosage: UNK
     Route: 042
  2. DOXORUBICIN HCL [Suspect]
     Active Substance: DOXORUBICIN HYDROCHLORIDE
     Indication: ANAPLASTIC THYROID CANCER
     Dosage: UNK
     Route: 042

REACTIONS (3)
  - Cystitis haemorrhagic [Unknown]
  - Failure to thrive [Recovered/Resolved]
  - Pneumonitis [Recovered/Resolved]
